FAERS Safety Report 8909653 (Version 4)
Quarter: 2013Q2

REPORT INFORMATION
  Report Type: Report from Study
  Country: ZA (occurrence: ZA)
  Receive Date: 20121115
  Receipt Date: 20130411
  Transmission Date: 20140414
  Serious: Yes (Death, Hospitalization)
  Sender: FDA-Public Use
  Company Number: ZA-ROCHE-1153379

PATIENT
  Age: 66 Year
  Sex: Female

DRUGS (11)
  1. TOCILIZUMAB [Suspect]
     Indication: RHEUMATOID ARTHRITIS
     Dosage: MOST RECENT DOSE - 26/SEP/2012
     Route: 042
  2. PREDNISONE [Suspect]
     Indication: RHEUMATOID ARTHRITIS
     Route: 048
     Dates: start: 20120209
  3. METHOTREXATE [Concomitant]
     Indication: RHEUMATOID ARTHRITIS
     Route: 048
     Dates: start: 19990415
  4. FOLATE [Concomitant]
     Route: 048
     Dates: start: 19990415
  5. GLUCOPHAGE [Concomitant]
     Indication: TYPE 2 DIABETES MELLITUS
     Route: 048
  6. ENALAPRIL [Concomitant]
     Indication: HYPERTENSION
     Route: 048
     Dates: start: 20051103
  7. RIDAQ [Concomitant]
     Indication: HYPERTENSION
     Route: 048
     Dates: start: 2006
  8. ADALAT XL [Concomitant]
     Indication: HYPERTENSION
     Route: 048
  9. ZOCOR [Concomitant]
     Indication: HYPERLIPIDAEMIA
     Route: 048
  10. LOSEC (SOUTH AFRICA) [Concomitant]
     Route: 048
  11. ISONIAZID [Concomitant]
     Route: 048
     Dates: start: 20120625, end: 20121109

REACTIONS (1)
  - Haematemesis [Fatal]
